FAERS Safety Report 8118214-6 (Version None)
Quarter: 2012Q1

REPORT INFORMATION
  Report Type: 
  Country: None (occurrence: None)
  Receive Date: 20120207
  Receipt Date: 20120123
  Transmission Date: 20120608
  Serious: Yes (Hospitalization)
  Sender: FDA-Public Use
  Company Number: US-RANBAXY-2012US-52190

PATIENT
  Age: 7 Month
  Sex: Male

DRUGS (5)
  1. FENTANYL CITRATE [Suspect]
     Indication: SEDATION
     Dosage: UNK
     Route: 065
  2. MORPHINE [Suspect]
     Indication: SEDATION
     Route: 065
  3. MORPHINE [Suspect]
     Indication: AGITATION
  4. LORAZEPAM [Suspect]
     Indication: SEDATION
     Route: 065
  5. LORAZEPAM [Suspect]
     Indication: AGITATION

REACTIONS (1)
  - DELIRIUM [None]
